FAERS Safety Report 9342572 (Version 2)
Quarter: 2013Q3

REPORT INFORMATION
  Report Type: Report from Study
  Country: CA (occurrence: CA)
  Receive Date: 20130611
  Receipt Date: 20130906
  Transmission Date: 20140515
  Serious: Yes (Disabling)
  Sender: FDA-Public Use
  Company Number: CA-BAYER-2013-071438

PATIENT
  Age: 43 Year
  Sex: Male

DRUGS (11)
  1. BETASERON [Suspect]
     Indication: MULTIPLE SCLEROSIS
     Dosage: 0.250 MG, UNK
     Dates: start: 19991216
  2. BETASERON [Suspect]
     Indication: MULTIPLE SCLEROSIS
     Dosage: 0.250 MG, UNK
     Dates: start: 19991216
  3. CARBAMAZEPINE [Concomitant]
     Dosage: 2 IN MORNING, I IN EVENING, 2 AT BEDTIME
  4. WARFARIN [Concomitant]
     Dosage: 10 MG, UNK
  5. GABAPENTIN [Concomitant]
     Dosage: 400 MG, TID
  6. VITAMIN B12 [Concomitant]
     Dosage: 250 ?G, UNK
  7. SEROQUEL [Concomitant]
     Dosage: 25 MG, HS
  8. BACLOFEN [Concomitant]
     Dosage: 10 MG, TID
  9. MORPHINE [Concomitant]
     Dosage: UNK UNK, PRN
  10. TYLENOL [PARACETAMOL] [Concomitant]
     Indication: PAIN
  11. ASPARTAME [Concomitant]

REACTIONS (6)
  - Pain in extremity [None]
  - Arthralgia [None]
  - Gait disturbance [Recovering/Resolving]
  - Middle insomnia [None]
  - Injection site discolouration [Unknown]
  - Tremor [Recovering/Resolving]
